FAERS Safety Report 21291409 (Version 2)
Quarter: 2022Q3

REPORT INFORMATION
  Report Type: Spontaneous
  Country: US (occurrence: US)
  Receive Date: 20220903
  Receipt Date: 20220920
  Transmission Date: 20221027
  Serious: No
  Sender: FDA-Public Use
  Company Number: US-TEVA-2022-US-2068871

PATIENT
  Age: 67 Year
  Sex: Male
  Weight: 91 kg

DRUGS (2)
  1. SILDENAFIL [Suspect]
     Active Substance: SILDENAFIL
     Indication: Product used for unknown indication
     Dosage: 25 MILLIGRAM DAILY; 25 MILLIGRAM, EVERYDAY , AS NEEDED.
     Route: 048
     Dates: start: 20220815
  2. SILDENAFIL [Suspect]
     Active Substance: SILDENAFIL
     Dosage: 50 MILLIGRAM DAILY;
     Route: 048

REACTIONS (2)
  - Drug ineffective [Unknown]
  - Inability to afford medication [Unknown]

NARRATIVE: CASE EVENT DATE: 20220815
